FAERS Safety Report 7102210-1 (Version None)
Quarter: 2010Q4

REPORT INFORMATION
  Report Type: 
  Country: None (occurrence: None)
  Receive Date: 20101115
  Receipt Date: 20101104
  Transmission Date: 20110411
  Serious: No
  Sender: FDA-Public Use
  Company Number: US-BIOGENIDEC-2010BI028410

PATIENT
  Age: 44 Year
  Sex: Female

DRUGS (1)
  1. TYSABRI [Suspect]
     Indication: MULTIPLE SCLEROSIS
     Route: 042
     Dates: start: 20100811

REACTIONS (6)
  - ABDOMINAL PAIN UPPER [None]
  - DEHYDRATION [None]
  - DYSPEPSIA [None]
  - NAUSEA [None]
  - URTICARIA [None]
  - VOMITING PROJECTILE [None]
